FAERS Safety Report 6790035-6 (Version None)
Quarter: 2010Q2

REPORT INFORMATION
  Report Type: 
  Country: None (occurrence: None)
  Receive Date: 20100624
  Receipt Date: 20100621
  Transmission Date: 20101027
  Serious: Yes (Life-Threatening, Hospitalization)
  Sender: FDA-Public Use
  Company Number: PHHO2010US09397

PATIENT
  Sex: Male
  Weight: 84 kg

DRUGS (7)
  1. BLINDED ALISKIREN ALI+TAB [Suspect]
     Indication: HYPERTENSION
     Dosage: DOUBLE BLIND
     Route: 048
     Dates: start: 20100528, end: 20100619
  2. DIOVAN [Suspect]
     Indication: HYPERTENSION
     Dosage: DOUBLE BLIND
     Route: 048
     Dates: start: 20100528, end: 20100619
  3. BLINDED NO TREATMENT RECEIVED NOMED [Suspect]
     Indication: HYPERTENSION
     Dosage: DOUBLE BLIND
     Route: 048
     Dates: start: 20100528, end: 20100619
  4. BLINDED SPV100 SPV+ [Suspect]
     Indication: HYPERTENSION
     Dosage: DOUBLE BLIND
     Route: 048
     Dates: start: 20100528, end: 20100619
  5. VALSARTAN [Suspect]
     Indication: HYPERTENSION
     Dosage: UNK
     Route: 048
     Dates: start: 20100528, end: 20100619
  6. IBUPROFEN [Concomitant]
  7. PRILOSEC [Concomitant]

REACTIONS (2)
  - CEREBROVASCULAR ACCIDENT [None]
  - MENTAL STATUS CHANGES [None]
